FAERS Safety Report 9774557 (Version 1)
Quarter: 2013Q4

REPORT INFORMATION
  Report Type: Spontaneous
  Country: US (occurrence: US)
  Receive Date: 20131220
  Receipt Date: 20131220
  Transmission Date: 20140711
  Serious: Yes (Other)
  Sender: FDA-Public Use
  Company Number: US-ELI_LILLY_AND_COMPANY-US201312004693

PATIENT
  Age: 15 Year
  Sex: Female

DRUGS (1)
  1. INSULIN LISPRO [Suspect]
     Indication: PRODUCT USED FOR UNKNOWN INDICATION
     Route: 058

REACTIONS (2)
  - Ketosis [Unknown]
  - Blood glucose increased [Unknown]
